FAERS Safety Report 8264868-3 (Version None)
Quarter: 2012Q2

REPORT INFORMATION
  Report Type: 
  Country: None (occurrence: None)
  Receive Date: 20120406
  Receipt Date: 20120323
  Transmission Date: 20120825
  Serious: Yes (Other)
  Sender: FDA-Public Use
  Company Number: DK-ELI_LILLY_AND_COMPANY-DK201203007506

PATIENT
  Sex: Male
  Weight: 105 kg

DRUGS (2)
  1. ZYPREXA [Suspect]
     Dosage: UNK UNK, QD
     Route: 048
     Dates: start: 20111201
  2. ZYPREXA [Suspect]
     Indication: SCHIZOPHRENIA, PARANOID TYPE
     Dosage: 10 MG, BID
     Route: 048
     Dates: start: 20111020

REACTIONS (1)
  - NEUTROPENIA [None]
